FAERS Safety Report 13736256 (Version 1)
Quarter: 2017Q3

REPORT INFORMATION
  Report Type: Spontaneous
  Country: US (occurrence: US)
  Receive Date: 20170710
  Receipt Date: 20170710
  Transmission Date: 20171127
  Serious: No
  Sender: FDA-Public Use
  Company Number: PHEH2017US020461

PATIENT
  Sex: Male

DRUGS (1)
  1. PREDNISOLONE ACETATE. [Suspect]
     Active Substance: PREDNISOLONE ACETATE
     Indication: POSTERIOR LENS CAPSULOTOMY
     Dosage: 4 GTT,(FOR ONE WEEK)
     Route: 047

REACTIONS (3)
  - Foreign body sensation in eyes [Unknown]
  - Corneal abrasion [Unknown]
  - Foreign body in eye [Unknown]
